FAERS Safety Report 7866498-1 (Version None)
Quarter: 2011Q4

REPORT INFORMATION
  Report Type: 
  Country: None (occurrence: None)
  Receive Date: 20111028
  Receipt Date: 20110627
  Transmission Date: 20120403
  Serious: No
  Sender: FDA-Public Use
  Company Number: US-GLAXOSMITHKLINE-A0933248A

PATIENT
  Age: 85 Year
  Sex: Female

DRUGS (5)
  1. TEKTURNA [Concomitant]
  2. MULTI-VITAMIN [Concomitant]
  3. ADVAIR DISKUS 100/50 [Suspect]
     Indication: ASTHMA
     Dosage: 1PUFF TWICE PER DAY
     Route: 055
     Dates: start: 20110301
  4. LEVOXYL [Concomitant]
  5. CO Q 10 [Concomitant]

REACTIONS (7)
  - SOMNOLENCE [None]
  - COUGH [None]
  - FEELING HOT [None]
  - OCULAR DISCOMFORT [None]
  - DYSPNOEA [None]
  - EYE IRRITATION [None]
  - VISUAL IMPAIRMENT [None]
